FAERS Safety Report 25741377 (Version 2)
Quarter: 2025Q3

REPORT INFORMATION
  Report Type: Spontaneous
  Country: JP (occurrence: JP)
  Receive Date: 20250829
  Receipt Date: 20250922
  Transmission Date: 20251021
  Serious: Yes (Other)
  Sender: JAZZ
  Company Number: JP-JAZZ PHARMACEUTICALS-2024-JP-021520

PATIENT
  Age: 21 Year
  Sex: Female

DRUGS (4)
  1. VYXEOS [Suspect]
     Active Substance: CYTARABINE\DAUNORUBICIN
     Indication: Acute myeloid leukaemia
     Dates: start: 20241021, end: 20241025
  2. VYXEOS [Suspect]
     Active Substance: CYTARABINE\DAUNORUBICIN
  3. VYXEOS [Suspect]
     Active Substance: CYTARABINE\DAUNORUBICIN
  4. CYTARABINE [Concomitant]
     Active Substance: CYTARABINE
     Indication: Acute myeloid leukaemia

REACTIONS (11)
  - Thrombophlebitis septic [Unknown]
  - Febrile neutropenia [Unknown]
  - Stomatitis [Unknown]
  - Catheter site pain [Unknown]
  - Catheter site erythema [Unknown]
  - Staphylococcus test positive [Unknown]
  - Pyrexia [Unknown]
  - Pyrexia [Unknown]
  - Pyrexia [Unknown]
  - Pyrexia [Unknown]
  - Pyrexia [Unknown]

NARRATIVE: CASE EVENT DATE: 20240101
